FAERS Safety Report 10065547 (Version 2)
Quarter: 2014Q2

REPORT INFORMATION
  Report Type: Spontaneous
  Country: US (occurrence: US)
  Receive Date: 20140408
  Receipt Date: 20140424
  Transmission Date: 20141212
  Serious: Yes (Other)
  Sender: FDA-Public Use
  Company Number: US-BAYER-2014-043792

PATIENT
  Sex: Female

DRUGS (1)
  1. ALEVE TABLET [Suspect]
     Dosage: UNK
     Route: 048

REACTIONS (5)
  - Chemical burn of gastrointestinal tract [None]
  - Hypoaesthesia oral [None]
  - Pain [None]
  - Oral discomfort [None]
  - Foreign body [None]
